FAERS Safety Report 8599447-1 (Version None)
Quarter: 2012Q3

REPORT INFORMATION
  Report Type: 
  Country: None (occurrence: None)
  Receive Date: 20120816
  Receipt Date: 20120809
  Transmission Date: 20120928
  Serious: Yes (Other)
  Sender: FDA-Public Use
  Company Number: GB-GENZYME-CAMP-1002367

PATIENT
  Sex: Female
  Weight: 62 kg

DRUGS (2)
  1. ALEMTUZUMAB [Suspect]
     Indication: MULTIPLE SCLEROSIS
     Dosage: 12 MG, QD
     Route: 042
     Dates: start: 20091109, end: 20091111
  2. ALEMTUZUMAB [Suspect]
     Dosage: 12 MG, QD
     Route: 042
     Dates: start: 20081103, end: 20081107

REACTIONS (1)
  - BREAST CANCER [None]
